FAERS Safety Report 9396203 (Version 1)
Quarter: 2013Q3

REPORT INFORMATION
  Report Type: Spontaneous
  Country: AU (occurrence: AU)
  Receive Date: 20130711
  Receipt Date: 20130711
  Transmission Date: 20140515
  Serious: Yes (Life-Threatening)
  Sender: FDA-Public Use
  Company Number: AU-BAXTER-2013BAX025993

PATIENT
  Age: 67 Year
  Sex: Male

DRUGS (4)
  1. BAXTER 50% ANHYDROUS GLUCOSE 250G_500ML INJECTION BP BAG AHB0253 [Suspect]
     Indication: HYPOGLYCAEMIA
     Route: 042
  2. BAXTER 50% ANHYDROUS GLUCOSE 250G_500ML INJECTION BP BAG AHB0253 [Suspect]
     Route: 042
  3. NPH INSULIN [Concomitant]
     Indication: DIABETES MELLITUS
  4. REGULAR INSULIN [Concomitant]
     Indication: DIABETES MELLITUS

REACTIONS (1)
  - Anaphylactoid reaction [Recovered/Resolved]
